FAERS Safety Report 21434942 (Version 2)
Quarter: 2022Q4

REPORT INFORMATION
  Report Type: Spontaneous
  Country: US (occurrence: US)
  Receive Date: 20221010
  Receipt Date: 20221014
  Transmission Date: 20230113
  Serious: No
  Sender: FDA-Public Use
  Company Number: US-APOTEX-2022AP011707

PATIENT
  Age: 31 Year
  Sex: Female

DRUGS (6)
  1. BUPRENORPHINE [Suspect]
     Active Substance: BUPRENORPHINE
     Indication: Drug use disorder
     Dosage: UNK UNK, SINGLE
     Route: 065
  2. METHADONE [Concomitant]
     Active Substance: METHADONE HYDROCHLORIDE
     Indication: Drug use disorder
     Dosage: 40 MILLIGRAM
     Route: 065
  3. METHADONE [Concomitant]
     Active Substance: METHADONE HYDROCHLORIDE
     Indication: Analgesic therapy
     Dosage: 150 MILLIGRAM, QD
     Route: 048
  4. METHADONE [Concomitant]
     Active Substance: METHADONE HYDROCHLORIDE
     Dosage: 150 MILLIGRAM (VIA SPLIT THREE TIMES A DAY DOSING)
     Route: 048
  5. FENTANYL [Concomitant]
     Active Substance: FENTANYL
     Indication: Product used for unknown indication
     Dosage: UNK, APPROXIMATELY SEVEN TIMES PER DAY
     Route: 045
  6. COCAINE [Concomitant]
     Active Substance: COCAINE
     Indication: Product used for unknown indication
     Dosage: UNK UNK, Q.O.WK. (APPROXIMATELY ONCE EVERY 2 WEEKS)
     Route: 045

REACTIONS (2)
  - Drug withdrawal syndrome [Unknown]
  - Prescription drug used without a prescription [Unknown]
